FAERS Safety Report 22626046 (Version 1)
Quarter: 2023Q2

REPORT INFORMATION
  Report Type: Spontaneous
  Country: US (occurrence: None)
  Receive Date: 20230619
  Receipt Date: 20230619
  Transmission Date: 20230722
  Serious: Yes (Other)
  Sender: FDA-Public Use
  Company Number: None

PATIENT
  Sex: Male

DRUGS (5)
  1. BETHKIS [Suspect]
     Active Substance: TOBRAMYCIN
     Indication: Product used for unknown indication
     Dosage: 300 MG/4ML INHALATION??INHALE 1.1 ML (82.5 MG TOTAL) VIA NEBULIZER TWICE DAILY FOR 28 DAYS ON, 28 DA
     Route: 055
     Dates: start: 20210921
  2. FLINTSTONES [Concomitant]
  3. PROTONIX [Concomitant]
     Active Substance: PANTOPRAZOLE SODIUM
  4. VIGABATRIN [Concomitant]
     Active Substance: VIGABATRIN
  5. VITAMIN D [Concomitant]

REACTIONS (1)
  - Nephrolithiasis [None]
